FAERS Safety Report 16728405 (Version 1)
Quarter: 2019Q3

REPORT INFORMATION
  Report Type: Spontaneous
  Country: DE (occurrence: DE)
  Receive Date: 20190822
  Receipt Date: 20190822
  Transmission Date: 20191005
  Serious: Yes (Hospitalization)
  Sender: FDA-Public Use
  Company Number: DE-TEVA-2019-DE-1094114

PATIENT
  Age: 67 Year
  Sex: Male

DRUGS (16)
  1. SPIRONOLACTON [Suspect]
     Active Substance: SPIRONOLACTONE
     Dosage: 25 MG, 1-0-0-0,
     Route: 048
  2. FUROSEMID [Suspect]
     Active Substance: FUROSEMIDE
     Dosage: 250 MG, 1-1-0-0,
     Route: 048
  3. SITAGLIPTIN [Concomitant]
     Active Substance: SITAGLIPTIN
     Dosage: 25 MG, 1-0-0-0,
     Route: 048
  4. PROCORALAN 5MG [Concomitant]
     Dosage: 5 MG, 1-0-1-0,
     Route: 048
  5. ADENURIC 80MG [Concomitant]
     Dosage: 80 MG, 1-0-0-0,
     Route: 048
  6. METAMIZOL [Concomitant]
     Active Substance: METAMIZOLE SODIUM
     Dosage: 500 MG,
     Route: 048
  7. METOPROLOL. [Concomitant]
     Active Substance: METOPROLOL
     Dosage: 47.5 MG, 1-0-1-0,
     Route: 048
  8. MAGNETRANS FORTE 150MG [Concomitant]
     Dosage: 150 MG, 1-0-1-0,
     Route: 048
  9. INSULIN HUMAN [Concomitant]
     Active Substance: INSULIN HUMAN
     Route: 058
  10. CALCITRIOL. [Concomitant]
     Active Substance: CALCITRIOL
     Dosage: 0.25 MG, 2-0-0-0,
     Route: 048
  11. VALSARTAN. [Suspect]
     Active Substance: VALSARTAN
     Dosage: 80 MG, 1-0-0-0,
     Route: 048
  12. HYDROCHLOROTHIAZID [Suspect]
     Active Substance: HYDROCHLOROTHIAZIDE
     Dosage: 25 MG, 1-0-0-0,
     Route: 048
  13. ISOMONIT 50MG RETARD HARTKAPSELN [Concomitant]
     Dosage: 50 MG, 1-0-0-0,
     Route: 048
  14. RIVAROXABAN [Concomitant]
     Active Substance: RIVAROXABAN
     Dosage: 15 MG, 0-0-1-0,
     Route: 048
  15. PANTOPRAZOL [Concomitant]
     Active Substance: PANTOPRAZOLE SODIUM
     Dosage: 40 MG, 1-0-0-0,
     Route: 048
  16. TILIDIN/NALOXON [Concomitant]
     Active Substance: NALOXONE HYDROCHLORIDE\TILIDINE HYDROCHLORIDE
     Dosage: 1008 MG, 1-0-0-0,
     Route: 048

REACTIONS (3)
  - Product monitoring error [Unknown]
  - Fatigue [Unknown]
  - Visual impairment [Unknown]
